FAERS Safety Report 9468041 (Version 2)
Quarter: 2013Q4

REPORT INFORMATION
  Report Type: Spontaneous
  Country: US (occurrence: US)
  Receive Date: 20130821
  Receipt Date: 20131011
  Transmission Date: 20140711
  Serious: No
  Sender: FDA-Public Use
  Company Number: US-009507513-1308USA006741

PATIENT
  Age: 84 Year
  Sex: Male
  Weight: 84.81 kg

DRUGS (2)
  1. NASONEX [Suspect]
     Indication: EAR INFECTION
     Dosage: 2 PUFFS EACH NOSTRIL
     Route: 045
     Dates: start: 20130717, end: 20130814
  2. NASONEX [Suspect]
     Indication: RHINITIS

REACTIONS (2)
  - Visual acuity reduced [Recovering/Resolving]
  - Cough [Recovering/Resolving]
